FAERS Safety Report 4958204-5 (Version None)
Quarter: 2006Q1

REPORT INFORMATION
  Report Type: 
  Country: None (occurrence: None)
  Receive Date: 20060324
  Receipt Date: 20060310
  Transmission Date: 20060701
  Serious: Yes (Hospitalization)
  Sender: FDA-Public Use
  Company Number: 2006027378

PATIENT
  Age: 50 Year
  Sex: Female
  Weight: 68.5 kg

DRUGS (4)
  1. EPIRUBICIN [Suspect]
     Indication: ILL-DEFINED DISORDER
     Dosage: (150 MG)
     Dates: start: 20050203
  2. DOCETAXEL (DOCETAXEL) [Suspect]
     Indication: ILL-DEFINED DISORDER
     Dosage: (130 MG)
     Dates: start: 20051129, end: 20060202
  3. DIAZEPAM [Concomitant]
  4. BETAMETHASONE [Concomitant]

REACTIONS (2)
  - CONFUSIONAL STATE [None]
  - EMOTIONAL DISTRESS [None]
